FAERS Safety Report 8906226 (Version 1)
Quarter: 2012Q4

REPORT INFORMATION
  Report Type: Spontaneous
  Country: US (occurrence: None)
  Receive Date: 20121112
  Receipt Date: 20121112
  Transmission Date: 20130627
  Serious: Yes (Life-Threatening, Disabling, Other)
  Sender: FDA-Public Use
  Company Number: None

PATIENT
  Age: 37 Year
  Sex: Female
  Weight: 99.79 kg

DRUGS (1)
  1. TOPIRAMATE [Suspect]
     Indication: MIGRAINE PROPHYLAXIS
     Dosage: 25mg Once per day po
     Route: 048
     Dates: start: 20110501, end: 20120901

REACTIONS (10)
  - Pneumonia [None]
  - Oral candidiasis [None]
  - Conjunctivitis [None]
  - Corneal infection [None]
  - No therapeutic response [None]
  - Streptococcus test negative [None]
  - Viral test positive [None]
  - Aspergillosis [None]
  - Gait disturbance [None]
  - Immunodeficiency [None]
